FAERS Safety Report 4638781-4 (Version None)
Quarter: 2005Q2

REPORT INFORMATION
  Report Type: 
  Country: None (occurrence: None)
  Receive Date: 20050328
  Receipt Date: 20050104
  Transmission Date: 20051028
  Serious: No
  Sender: FDA-Public Use
  Company Number: US_0411108652

PATIENT
  Age: 32 Year
  Sex: Male

DRUGS (2)
  1. STRATTERA [Suspect]
     Indication: ATTENTION DEFICIT/HYPERACTIVITY DISORDER
     Dosage: 80 MG/1 DAY
     Dates: start: 20041108
  2. WELLBUTRIN [Concomitant]

REACTIONS (6)
  - DISCOMFORT [None]
  - EJACULATION DISORDER [None]
  - ERECTILE DYSFUNCTION [None]
  - ORGASM ABNORMAL [None]
  - SEXUAL DYSFUNCTION [None]
  - SINUSITIS [None]
